FAERS Safety Report 17426083 (Version 4)
Quarter: 2020Q1

REPORT INFORMATION
  Report Type: Spontaneous
  Country: US (occurrence: US)
  Receive Date: 20200218
  Receipt Date: 20200228
  Transmission Date: 20200409
  Serious: No
  Sender: FDA-Public Use
  Company Number: US-JNJFOC-20200145467

PATIENT
  Age: 65 Year
  Sex: Female
  Weight: 65.83 kg

DRUGS (1)
  1. WOMENS ROGAINE UNSCENTED [Suspect]
     Active Substance: MINOXIDIL
     Indication: ALOPECIA
     Dosage: DOSE: LITTLE DUBFULL OVER TOP OF THE HEAD AND FREQUENCY: ONCE.?THE PRODUCT WAS LAST ADMINISTERED ON
     Route: 061
     Dates: start: 201910

REACTIONS (4)
  - Application site vesicles [Recovered/Resolved]
  - Incorrect dose administered [Unknown]
  - Application site erythema [Recovered/Resolved]
  - Product formulation issue [Unknown]

NARRATIVE: CASE EVENT DATE: 201910
